FAERS Safety Report 5990112-3 (Version None)
Quarter: 2008Q4

REPORT INFORMATION
  Report Type: 
  Country: None (occurrence: None)
  Receive Date: 20081211
  Receipt Date: 20081204
  Transmission Date: 20090506
  Serious: Yes (Other)
  Sender: FDA-Public Use
  Company Number: BR-JNJFOC-20081201949

PATIENT
  Age: 75 Year
  Sex: Female
  Weight: 76 kg

DRUGS (3)
  1. REMINYL ER [Suspect]
     Indication: DEMENTIA ALZHEIMER'S TYPE
  2. AKINETON [Concomitant]
     Indication: PARKINSON'S DISEASE
  3. CORGARD [Concomitant]
     Indication: ARRHYTHMIA
     Dosage: SINCE MANY YEARS AGO

REACTIONS (4)
  - ARRHYTHMIA [None]
  - DIARRHOEA [None]
  - NAUSEA [None]
  - VOMITING [None]
